FAERS Safety Report 17536956 (Version 7)
Quarter: 2020Q4

REPORT INFORMATION
  Report Type: Other
  Country: CA (occurrence: CA)
  Receive Date: 20200313
  Receipt Date: 20201228
  Transmission Date: 20210113
  Serious: Yes (Hospitalization, Other)
  Sender: FDA-Public Use
  Company Number: CA-ROCHE-2548646

PATIENT
  Sex: Male
  Weight: 109 kg

DRUGS (2)
  1. OCREVUS [Suspect]
     Active Substance: OCRELIZUMAB
     Indication: RELAPSING-REMITTING MULTIPLE SCLEROSIS
     Dosage: 300 MG AT DAY 0 AND 14, THEN 600 MG EVERY 6 MONTH
     Route: 042
     Dates: start: 20180814
  2. AMINOPYRIDINE [Concomitant]
     Active Substance: DALFAMPRIDINE

REACTIONS (8)
  - Muscle spasticity [Unknown]
  - Influenza [Recovering/Resolving]
  - Back pain [Unknown]
  - Musculoskeletal chest pain [Recovering/Resolving]
  - Arthritis [Not Recovered/Not Resolved]
  - Mobility decreased [Not Recovered/Not Resolved]
  - Fall [Unknown]
  - Intervertebral disc protrusion [Not Recovered/Not Resolved]
